FAERS Safety Report 9476487 (Version 1)
Quarter: 2013Q3

REPORT INFORMATION
  Report Type: Spontaneous
  Country: US (occurrence: US)
  Receive Date: 20130826
  Receipt Date: 20130826
  Transmission Date: 20140515
  Serious: Yes (Other)
  Sender: FDA-Public Use
  Company Number: US-ROXANE LABORATORIES, INC.-2013-RO-01406RO

PATIENT
  Age: 45 Year
  Sex: Male

DRUGS (4)
  1. ZOLPIDEM [Suspect]
     Indication: MAJOR DEPRESSION
     Dosage: 10 MG
  2. LORAZEPAM [Suspect]
  3. QUETIAPINE FUMARATE [Suspect]
     Indication: MAJOR DEPRESSION
     Dosage: 100 MG
  4. PAROXETINE [Suspect]
     Indication: MAJOR DEPRESSION
     Dosage: 37.5 MG

REACTIONS (3)
  - Aggression [Unknown]
  - Amnesia [Unknown]
  - Catatonia [Unknown]
